FAERS Safety Report 5088367-5 (Version None)
Quarter: 2006Q3

REPORT INFORMATION
  Report Type: 
  Country: None (occurrence: None)
  Receive Date: 20060822
  Receipt Date: 20060815
  Transmission Date: 20061208
  Serious: Yes (Hospitalization)
  Sender: FDA-Public Use
  Company Number: 062-20785-06080661

PATIENT
  Age: 48 Year
  Sex: Male

DRUGS (2)
  1. THALOMID [Suspect]
     Indication: CHRONIC LYMPHOCYTIC LEUKAEMIA
     Dosage: 100 MG DAILY ORAL
     Route: 048
  2. METHYLPREDNISOLONE [Suspect]
     Indication: CHRONIC LYMPHOCYTIC LEUKAEMIA
     Dosage: 8 MG, 3 TIMES PER WEEK

REACTIONS (1)
  - BRONCHOPULMONARY ASPERGILLOSIS [None]
